FAERS Safety Report 10212976 (Version 1)
Quarter: 2014Q2

REPORT INFORMATION
  Report Type: Spontaneous
  Country: US (occurrence: US)
  Receive Date: 20140602
  Receipt Date: 20140602
  Transmission Date: 20141212
  Serious: Yes (Other)
  Sender: FDA-Public Use
  Company Number: US-JNJFOC-20140512086

PATIENT
  Age: 16 Year
  Sex: Male
  Weight: 72.12 kg

DRUGS (4)
  1. CONCERTA [Suspect]
     Indication: HEADACHE
     Route: 048
     Dates: start: 20140507, end: 20140507
  2. TYLENOL [Suspect]
     Route: 048
  3. TYLENOL [Suspect]
     Indication: HEADACHE
     Route: 048
     Dates: start: 201403
  4. AMITRIPTYLINE [Suspect]
     Indication: HEADACHE
     Route: 048
     Dates: start: 201405, end: 20140507

REACTIONS (3)
  - Convulsion [Not Recovered/Not Resolved]
  - Muscle twitching [Not Recovered/Not Resolved]
  - Off label use [Unknown]
